FAERS Safety Report 21440069 (Version 1)
Quarter: 2022Q4

REPORT INFORMATION
  Report Type: Spontaneous
  Country: IN (occurrence: IN)
  Receive Date: 20221011
  Receipt Date: 20221011
  Transmission Date: 20230113
  Serious: Yes (Death, Other)
  Sender: FDA-Public Use
  Company Number: IN-drreddys-LIT/IND/22/0155638

PATIENT
  Age: 57 Year
  Sex: Male

DRUGS (6)
  1. AZACITIDINE [Suspect]
     Active Substance: AZACITIDINE
     Indication: Acute myeloid leukaemia
  2. VENETOCLAX [Suspect]
     Active Substance: VENETOCLAX
     Indication: Acute myeloid leukaemia
  3. DECITABINE [Suspect]
     Active Substance: DECITABINE
     Indication: Acute myeloid leukaemia
  4. DECITABINE [Suspect]
     Active Substance: DECITABINE
  5. PRIMAQUINE [Concomitant]
     Active Substance: PRIMAQUINE
     Indication: Acute myeloid leukaemia
  6. CLINDAMYCIN [Concomitant]
     Active Substance: CLINDAMYCIN
     Indication: Acute myeloid leukaemia

REACTIONS (2)
  - Pneumocystis jirovecii pneumonia [Fatal]
  - Neutropenia [Unknown]
